FAERS Safety Report 10918124 (Version 2)
Quarter: 2015Q2

REPORT INFORMATION
  Report Type: Spontaneous
  Country: US (occurrence: US)
  Receive Date: 20150316
  Receipt Date: 20150403
  Transmission Date: 20150821
  Serious: Yes (Other)
  Sender: FDA-Public Use
  Company Number: US-SHIRE-US201502081

PATIENT
  Sex: Female

DRUGS (2)
  1. LIALDA [Suspect]
     Active Substance: MESALAMINE
     Indication: COLITIS
     Dosage: 1.2 G, 1X/DAY:QD
     Route: 048
     Dates: start: 201502
  2. LIALDA [Suspect]
     Active Substance: MESALAMINE
     Dosage: 1.2 G, 3X/DAY:TID
     Route: 048
     Dates: start: 2015

REACTIONS (4)
  - Inappropriate schedule of drug administration [Not Recovered/Not Resolved]
  - Abdominal distension [Not Recovered/Not Resolved]
  - Haematochezia [Unknown]
  - Medication residue present [Unknown]

NARRATIVE: CASE EVENT DATE: 2015
